FAERS Safety Report 11246764 (Version 1)
Quarter: 2015Q3

REPORT INFORMATION
  Report Type: Spontaneous
  Country: US (occurrence: None)
  Receive Date: 20150706
  Receipt Date: 20150706
  Transmission Date: 20151125
  Serious: Yes (Other)
  Sender: FDA-Public Use
  Company Number: None

PATIENT
  Age: 43 Day

DRUGS (4)
  1. MAGNESIUM [Concomitant]
     Active Substance: MAGNESIUM
  2. B + C VITAMIN [Concomitant]
  3. COQ10 [Concomitant]
     Active Substance: UBIDECARENONE
  4. LEVAQUIN [Suspect]
     Active Substance: LEVOFLOXACIN
     Indication: EAR INFECTION
     Dosage: 1
     Route: 048

REACTIONS (11)
  - Confusional state [None]
  - Suicidal ideation [None]
  - Dizziness [None]
  - Asthenia [None]
  - Headache [None]
  - Fatigue [None]
  - Panic attack [None]
  - Paraesthesia [None]
  - Activities of daily living impaired [None]
  - Delusion [None]
  - Nausea [None]

NARRATIVE: CASE EVENT DATE: 20150704
